FAERS Safety Report 14853128 (Version 2)
Quarter: 2018Q2

REPORT INFORMATION
  Report Type: Spontaneous
  Country: US (occurrence: US)
  Receive Date: 20180507
  Receipt Date: 20180521
  Transmission Date: 20180711
  Serious: Yes (Other)
  Sender: FDA-Public Use
  Company Number: US-LEXICON PHARMACEUTICALS, INC-18-1606-00501

PATIENT
  Age: 78 Year
  Sex: Male

DRUGS (11)
  1. TELOTRISTAT ETHYL [Suspect]
     Active Substance: TELOTRISTAT ETHYL
     Route: 048
  2. ALEVE [Concomitant]
     Active Substance: NAPROXEN SODIUM
  3. CREON [Concomitant]
     Active Substance: PANCRELIPASE AMYLASE\PANCRELIPASE LIPASE\PANCRELIPASE PROTEASE
  4. TELOTRISTAT ETHYL [Suspect]
     Active Substance: TELOTRISTAT ETHYL
     Route: 048
     Dates: start: 20180316
  5. LANREOTIDE [Concomitant]
     Active Substance: LANREOTIDE
     Dates: start: 201402
  6. IMODIUM [Concomitant]
     Active Substance: LOPERAMIDE HYDROCHLORIDE
  7. SANDOSTATIN LAR DEPOT [Concomitant]
     Active Substance: OCTREOTIDE ACETATE
     Dates: start: 200902, end: 201402
  8. TINCTURE OF OPIUM [Concomitant]
     Active Substance: OPIUM
  9. TELOTRISTAT ETHYL [Suspect]
     Active Substance: TELOTRISTAT ETHYL
     Route: 048
     Dates: start: 2017
  10. AFINITOR [Concomitant]
     Active Substance: EVEROLIMUS
     Dates: start: 201606
  11. TELOTRISTAT ETHYL [Suspect]
     Active Substance: TELOTRISTAT ETHYL
     Indication: CARCINOID TUMOUR
     Route: 048
     Dates: start: 20170810, end: 2017

REACTIONS (1)
  - Malignant ascites [Unknown]

NARRATIVE: CASE EVENT DATE: 201803
